FAERS Safety Report 7743056-0 (Version None)
Quarter: 2011Q3

REPORT INFORMATION
  Report Type: 
  Country: None (occurrence: None)
  Receive Date: 20110908
  Receipt Date: 20110908
  Transmission Date: 20111222
  Serious: Yes (Death)
  Sender: FDA-Public Use
  Company Number: None

PATIENT
  Sex: Female
  Weight: 85.2762 kg

DRUGS (5)
  1. SIMVASTATIN [Concomitant]
  2. SYNBICONT [Concomitant]
  3. SPIRIVA [Concomitant]
  4. XOLAIR [Suspect]
     Indication: ASTHMA
     Dosage: 300MG 4WKS SUBQ
     Route: 058
  5. ALTENOLOL/HFA [Concomitant]

REACTIONS (1)
  - PULMONARY FIBROSIS [None]
